FAERS Safety Report 8688190 (Version 4)
Quarter: 2013Q3

REPORT INFORMATION
  Report Type: Report from Study
  Country: JP (occurrence: JP)
  Receive Date: 20120727
  Receipt Date: 20130816
  Transmission Date: 20140515
  Serious: Yes (Life-Threatening, Hospitalization, Other)
  Sender: FDA-Public Use
  Company Number: JP-SHIRE-ALL1-2011-02141

PATIENT
  Age: 69 Year
  Sex: Male

DRUGS (24)
  1. 405 (LANTHANUM CARBONATE) [Suspect]
     Indication: HYPERPHOSPHATAEMIA
     Dosage: 2250 MG, UNKNOWN
     Route: 048
     Dates: start: 20100430
  2. OXAROL [Concomitant]
     Indication: PRODUCT USED FOR UNKNOWN INDICATION
     Dosage: 15 ?G, UNKNOWN
     Route: 042
     Dates: start: 20090401, end: 20090731
  3. OXAROL [Concomitant]
     Dosage: 20 ?G, UNKNOWN
     Route: 042
     Dates: start: 20090801, end: 20090915
  4. OXAROL [Concomitant]
     Dosage: 10 ?G, UNKNOWN
     Route: 042
     Dates: start: 20090916, end: 20091031
  5. OXAROL [Concomitant]
     Dosage: 15 ?G, UNKNOWN
     Route: 042
     Dates: start: 20100216, end: 20100430
  6. OXAROL [Concomitant]
     Dosage: 30 ?G, UNKNOWN
     Route: 042
     Dates: start: 20100501, end: 20101130
  7. OXAROL [Concomitant]
     Dosage: 20 ?G, UNKNOWN
     Route: 042
     Dates: start: 20101201, end: 20110131
  8. OXAROL [Concomitant]
     Dosage: 10 ?G, UNKNOWN
     Route: 042
     Dates: start: 20110201, end: 20110228
  9. OXAROL [Concomitant]
     Dosage: 5 ?G, UNKNOWN
     Route: 042
     Dates: start: 20110301, end: 20110531
  10. OXAROL [Concomitant]
     Dosage: 10 ?G, UNKNOWN
     Route: 042
     Dates: start: 20110601
  11. RENAGEL                            /01459901/ [Concomitant]
     Indication: HYPERPHOSPHATAEMIA
     Dosage: 1500 MG, 1X/DAY:QD
     Route: 048
     Dates: start: 20090530, end: 20090612
  12. REGPARA [Concomitant]
     Indication: HYPERPARATHYROIDISM SECONDARY
     Dosage: 25 MG, UNKNOWN
     Route: 048
     Dates: end: 20100917
  13. REGPARA [Concomitant]
     Dosage: 50 MG, UNKNOWN
     Route: 048
     Dates: start: 20100918
  14. LAC B [Concomitant]
     Indication: PRODUCT USED FOR UNKNOWN INDICATION
     Dosage: 3 G, UNKNOWN
     Route: 048
  15. SELBEX [Concomitant]
     Indication: PRODUCT USED FOR UNKNOWN INDICATION
     Dosage: 1.5 G, UNKNOWN
     Route: 048
  16. BAYASPIRIN [Concomitant]
     Indication: HYPERPARATHYROIDISM SECONDARY
     Dosage: 100 MG, UNKNOWN
     Route: 048
  17. OMEPRAL                            /00661201/ [Concomitant]
     Indication: PRODUCT USED FOR UNKNOWN INDICATION
     Dosage: 10 MG, UNKNOWN
     Route: 048
     Dates: end: 20101220
  18. EURODIN                            /00425901/ [Concomitant]
     Indication: PRODUCT USED FOR UNKNOWN INDICATION
     Dosage: 2 MG, UNKNOWN
     Route: 048
  19. ZESULAN [Concomitant]
     Indication: PRODUCT USED FOR UNKNOWN INDICATION
     Dosage: 1 DF, UNKNOWN
     Route: 047
  20. ARTIST [Concomitant]
     Indication: PRODUCT USED FOR UNKNOWN INDICATION
     Dosage: 5 MG, UNKNOWN
     Route: 048
  21. NITOROL [Concomitant]
     Indication: PRODUCT USED FOR UNKNOWN INDICATION
     Dosage: 40 MG, UNKNOWN
     Route: 041
  22. CORINAEL [Concomitant]
     Indication: PRODUCT USED FOR UNKNOWN INDICATION
     Dosage: 60 MG, UNKNOWN
     Route: 048
  23. RHUBARB [Concomitant]
     Indication: PRODUCT USED FOR UNKNOWN INDICATION
     Dosage: 3 G, UNKNOWN
     Route: 048
  24. HEPARIN [Concomitant]
     Indication: HAEMORRHAGE PROPHYLAXIS
     Dosage: UNK UNK, OTHER  (1A / 3WEEKS)
     Route: 042

REACTIONS (10)
  - Angina unstable [Recovering/Resolving]
  - Cardiac failure congestive [Recovering/Resolving]
  - Procedural hypotension [Recovering/Resolving]
  - Atrial fibrillation [Recovering/Resolving]
  - Cardiac failure [Recovering/Resolving]
  - Dizziness [Recovering/Resolving]
  - Peripheral arterial occlusive disease [Unknown]
  - Condition aggravated [Recovering/Resolving]
  - Lumbar spinal stenosis [Recovering/Resolving]
  - Syncope [Recovering/Resolving]
